FAERS Safety Report 4473853-9 (Version None)
Quarter: 2004Q4

REPORT INFORMATION
  Report Type: 
  Country: None (occurrence: None)
  Receive Date: 20041008
  Receipt Date: 20041008
  Transmission Date: 20050328
  Serious: Yes (Hospitalization)
  Sender: FDA-Public Use
  Company Number: None

PATIENT
  Age: 50 Year
  Sex: Male
  Weight: 84.2 kg

DRUGS (10)
  1. LISINOPRIL [Suspect]
     Indication: HYPERTENSION
     Dosage: 5 MG PO QD
     Route: 048
     Dates: start: 20040928, end: 20041005
  2. MULTI-VITAMIN [Concomitant]
  3. VITAMIN B COMPLEX/VITAMIN C [Concomitant]
  4. PSYLLIUM [Concomitant]
  5. TRAZODONE HCL [Concomitant]
  6. ETODOLAC [Concomitant]
  7. HYDROCHLOROTHIAZIDE [Concomitant]
  8. FLUNISOLIDE [Concomitant]
  9. CLOTRIMAZOLE [Concomitant]
  10. ATENOLOL [Concomitant]

REACTIONS (3)
  - ANGIONEUROTIC OEDEMA [None]
  - HYPOTENSION [None]
  - URTICARIA [None]
